FAERS Safety Report 9323187 (Version 1)
Quarter: 2013Q2

REPORT INFORMATION
  Report Type: Spontaneous
  Country: US (occurrence: US)
  Receive Date: 20130603
  Receipt Date: 20130603
  Transmission Date: 20140414
  Serious: No
  Sender: FDA-Public Use
  Company Number: US-BIOGENIDEC-2013BI048698

PATIENT
  Age: 30 Year
  Sex: Female

DRUGS (3)
  1. AVONEX [Suspect]
     Indication: MULTIPLE SCLEROSIS
     Route: 030
     Dates: start: 20130107
  2. KLONOPIN [Concomitant]
     Indication: MUSCLE SPASMS
  3. LEVOTHYROXINE [Concomitant]
     Indication: THYROID NEOPLASM

REACTIONS (3)
  - Lethargy [Recovered/Resolved]
  - Hyperaesthesia [Recovered/Resolved]
  - Influenza like illness [Recovered/Resolved]
